FAERS Safety Report 6275622-6 (Version None)
Quarter: 2009Q3

REPORT INFORMATION
  Report Type: 
  Country: None (occurrence: None)
  Receive Date: 20090721
  Receipt Date: 20080723
  Transmission Date: 20100115
  Serious: Yes (Life-Threatening, Hospitalization, Other)
  Sender: FDA-Public Use
  Company Number: US-PFIZER INC-2008011772

PATIENT
  Sex: Female

DRUGS (5)
  1. DILANTIN-125 [Suspect]
     Indication: CONVULSION
     Dosage: DAILY: EVERY DAY
     Dates: start: 19760101
  2. DILANTIN [Suspect]
     Dates: start: 19760101
  3. PHENYTOIN [Suspect]
  4. TEGRETOL [Suspect]
     Indication: CONVULSION
  5. VALIUM [Concomitant]
     Indication: CONVULSION

REACTIONS (15)
  - ABDOMINAL DISCOMFORT [None]
  - ABNORMAL BEHAVIOUR [None]
  - ANTICONVULSANT DRUG LEVEL DECREASED [None]
  - ANTICONVULSANT DRUG LEVEL INCREASED [None]
  - BRAIN OPERATION [None]
  - CONVULSION [None]
  - DECREASED APPETITE [None]
  - DRUG INEFFECTIVE [None]
  - FATIGUE [None]
  - GASTRIC DISORDER [None]
  - MALAISE [None]
  - OVERDOSE [None]
  - SURGERY [None]
  - WEIGHT DECREASED [None]
  - WITHDRAWAL SYNDROME [None]
